FAERS Safety Report 7391817 (Version 2)
Quarter: 2012Q4

REPORT INFORMATION
  Report Type: 
  Country: US (occurrence: US)
  Receive Date: 20100518
  Receipt Date: 20120919
  Transmission Date: 20130627
  Serious: Yes (Hospitalization, Other)
  Sender: FDA-Public Use
  Company Number: US-BAYER-201022333NA

PATIENT
  Age: 28 Year
  Sex: Female

DRUGS (35)
  1. YASMIN [Suspect]
     Route: 048
  2. ALPRAZOLAM [Concomitant]
     Indication: DEPRESSION
  3. ALPRAZOLAM [Concomitant]
     Indication: INSOMNIA
  4. MELATONIN [Concomitant]
  5. IBUPROFEN [Concomitant]
  6. TYLENOL [Concomitant]
  7. METHOCARBAMOL [Concomitant]
     Dosage: 750 mg, UNK
  8. KLONOPIN [Concomitant]
     Dosage: 0.5 mg, UNK
  9. KLONOPIN [Concomitant]
     Dosage: 1 mg, UNK
  10. ABILIFY [Concomitant]
     Dosage: 5 mg, UNK
  11. PRILOSEC [Concomitant]
     Dosage: 20 mg, daily
  12. FIORICET [Concomitant]
     Indication: NECK PAIN
  13. FIORICET [Concomitant]
     Indication: BACK PAIN
  14. METFORMIN HCL [Concomitant]
     Indication: POLYCYSTIC OVARIES
     Dosage: 500 mg, BID
  15. GFN 1,200/DM 20/PE 40 (INTERPRETED AS GUAIFENESIN/DEXTROMETHORPHAN [Concomitant]
  16. ENTEX [Concomitant]
  17. NITROGLYCERIN [Concomitant]
     Indication: CHEST PAIN
     Dosage: Single Dose
     Route: 060
     Dates: start: 20060515
  18. GEODON [Concomitant]
     Dosage: 40 mg, UNK
  19. CYMBALTA [Concomitant]
     Indication: DEPRESSION
     Dosage: 60 mg, UNK
  20. UNASYN [Concomitant]
     Dosage: UNK
     Dates: start: 20060527
  21. CIPRO [Concomitant]
     Dosage: UNK
     Dates: start: 20060527
  22. SOLU-MEDROL [Concomitant]
     Dosage: UNK
     Dates: start: 20060527
  23. AUGMENTIN [Concomitant]
     Dosage: 20 - 875-125 mg tablets twice daily for 10 days
  24. HYDROCODONE W/APAP [Concomitant]
     Dosage: 30 - 5/500 mg tablets
  25. VICODIN [Concomitant]
     Indication: PAIN
     Dosage: UNK
     Dates: start: 20060529
  26. OXYCODONE/APAP [Concomitant]
     Dosage: 12- 5/325 mg tablets
  27. CLINDAMYCIN [Concomitant]
  28. PHENERGAN [Concomitant]
     Dosage: 25 mg, UNK
  29. DILAUDID [Concomitant]
     Dosage: 2 mg, UNK
  30. ZOFRAN [Concomitant]
     Dosage: UNK
     Dates: start: 20060610
  31. ROCEPHIN [Concomitant]
     Dosage: 1 g, UNK
  32. LOPRESSOR [Concomitant]
  33. CELEXA [Concomitant]
  34. ATIVAN [Concomitant]
  35. MOTRIN [Concomitant]

REACTIONS (5)
  - Thrombophlebitis superficial [None]
  - Deep vein thrombosis [None]
  - Thrombosis [None]
  - Thrombophlebitis superficial [None]
  - Deep vein thrombosis [None]
